FAERS Safety Report 9654992 (Version 1)
Quarter: 2013Q4

REPORT INFORMATION
  Report Type: Spontaneous
  Country: US (occurrence: US)
  Receive Date: 20131029
  Receipt Date: 20131029
  Transmission Date: 20140711
  Serious: No
  Sender: FDA-Public Use
  Company Number: US-PURDUE-USA-2012-0092107

PATIENT
  Age: 40 Year
  Sex: Male

DRUGS (2)
  1. OXYCONTIN (NDA 22-272) [Suspect]
     Indication: ROAD TRAFFIC ACCIDENT
     Dosage: 160 MG, TID
     Route: 048
  2. OXYCONTIN (NDA 22-272) [Suspect]
     Indication: INJURY
     Dosage: 80 MG, TID
     Route: 048

REACTIONS (4)
  - Drug withdrawal syndrome [Unknown]
  - Pain [Unknown]
  - Feeling abnormal [Unknown]
  - Hyperhidrosis [Unknown]
